FAERS Safety Report 4338647-3 (Version None)
Quarter: 2004Q2

REPORT INFORMATION
  Report Type: 
  Country: None (occurrence: None)
  Receive Date: 20040414
  Receipt Date: 20040407
  Transmission Date: 20050107
  Serious: Yes (Other)
  Sender: FDA-Public Use
  Company Number: PHRM2004DZ01480

PATIENT
  Age: 70 Year
  Sex: Female

DRUGS (1)
  1. COTAREG [Suspect]

REACTIONS (1)
  - TOXIC SKIN ERUPTION [None]
